FAERS Safety Report 15788701 (Version 7)
Quarter: 2019Q1

REPORT INFORMATION
  Report Type: Report from Study
  Country: CN (occurrence: CN)
  Receive Date: 20190104
  Receipt Date: 20190306
  Transmission Date: 20190417
  Serious: Yes (Death, Hospitalization)
  Sender: FDA-Public Use
  Company Number: CN-ROCHE-2235975

PATIENT
  Age: 49 Year
  Sex: Female
  Weight: 56 kg

DRUGS (39)
  1. OXYCODONE/PARACETAMOL [Concomitant]
     Active Substance: ACETAMINOPHEN\OXYCODONE HYDROCHLORIDE
     Indication: PAIN
     Route: 048
     Dates: start: 20181028, end: 20181031
  2. GLYCEROL [Concomitant]
     Active Substance: GLYCERIN
     Dosage: SOLUTION, ENEMA, PER RECTUM
     Route: 065
     Dates: start: 20181030, end: 20181105
  3. MANNITOL. [Concomitant]
     Active Substance: MANNITOL
     Route: 042
     Dates: start: 20181222, end: 20181229
  4. DOPAMINE HYDROCHLORIDE. [Concomitant]
     Active Substance: DOPAMINE HYDROCHLORIDE
     Route: 042
     Dates: start: 20180112, end: 20180112
  5. POTASSIUM CHLORIDE. [Concomitant]
     Active Substance: POTASSIUM CHLORIDE
     Route: 042
     Dates: start: 20181030, end: 20181030
  6. VITAMIN B6 [Concomitant]
     Active Substance: PYRIDOXINE HYDROCHLORIDE
     Route: 042
     Dates: start: 20181030, end: 20181030
  7. OMEPRAZOLE SODIUM [Concomitant]
     Active Substance: OMEPRAZOLE SODIUM
     Dosage: ACID SUSPENSION
     Route: 042
     Dates: start: 20181227, end: 20190101
  8. SOMATOSTATIN [Concomitant]
     Active Substance: SOMATOSTATIN
     Route: 042
     Dates: start: 20190103, end: 20190105
  9. PIPERACILLIN/TAZOBACTAM SODIUM [Concomitant]
     Active Substance: PIPERACILLIN SODIUM\TAZOBACTAM SODIUM
     Route: 042
     Dates: start: 20190105, end: 20190107
  10. AMINOMETHYLBENZOIC ACID [Concomitant]
     Active Substance: AMINOMETHYLBENZOIC ACID
     Route: 042
     Dates: start: 20190112, end: 20190112
  11. POTASSIUM CHLORIDE. [Concomitant]
     Active Substance: POTASSIUM CHLORIDE
     Route: 042
     Dates: start: 20181223, end: 20190112
  12. ESTAZOLAM. [Concomitant]
     Active Substance: ESTAZOLAM
     Route: 048
     Dates: start: 20181222, end: 20181222
  13. OMEPRAZOLE SODIUM [Concomitant]
     Active Substance: OMEPRAZOLE SODIUM
     Dosage: ACID SUSPENSION
     Route: 042
     Dates: start: 20190101, end: 20190101
  14. MORPHINE SULFATE. [Concomitant]
     Active Substance: MORPHINE SULFATE
     Indication: HEADACHE
     Route: 048
     Dates: start: 20181222, end: 20190112
  15. AMBROXOL HYDROCHLORIDE [Concomitant]
     Active Substance: AMBROXOL HYDROCHLORIDE
     Route: 042
     Dates: start: 20181228, end: 20181230
  16. SOMATOSTATIN [Concomitant]
     Active Substance: SOMATOSTATIN
     Route: 042
     Dates: start: 20190112, end: 20190112
  17. MEROPENEM. [Concomitant]
     Active Substance: MEROPENEM
     Route: 042
     Dates: start: 20190107, end: 20190112
  18. OXALIPLATIN. [Concomitant]
     Active Substance: OXALIPLATIN
     Route: 042
     Dates: start: 20181222, end: 20181229
  19. INSULIN [Concomitant]
     Active Substance: INSULIN NOS
     Route: 042
     Dates: start: 20181223, end: 20190112
  20. AMBROXOL HYDROCHLORIDE [Concomitant]
     Active Substance: AMBROXOL HYDROCHLORIDE
     Route: 042
     Dates: start: 20181230, end: 20190104
  21. BACILLUS LICHENFORMIS [Concomitant]
     Route: 048
     Dates: start: 20190110, end: 20190112
  22. ADRENALINE HYDROCHLORIDE [Concomitant]
     Active Substance: EPINEPHRINE HYDROCHLORIDE
     Route: 042
     Dates: start: 20190112, end: 20190112
  23. COMPOUND PLATYCODON [Concomitant]
     Route: 048
     Dates: start: 20181022, end: 20181114
  24. DESLORATADINE. [Concomitant]
     Active Substance: DESLORATADINE
     Indication: HYPERSENSITIVITY
     Dosage: DISPERSIBLE TABLETS
     Route: 048
     Dates: start: 20181023, end: 20181027
  25. IBUPROFEN. [Concomitant]
     Active Substance: IBUPROFEN
     Indication: PAIN
     Route: 048
     Dates: start: 20181026, end: 20181026
  26. MANNITOL. [Concomitant]
     Active Substance: MANNITOL
     Route: 042
     Dates: start: 20181229, end: 20190112
  27. SODIUM GLYCEROPHOSPHATE [Concomitant]
     Active Substance: SODIUM GLYCEROPHOSPHATE
     Route: 042
     Dates: start: 20181226, end: 20190112
  28. BACILLUS LICHENFORMIS [Concomitant]
     Route: 050
     Dates: start: 20190108, end: 20190110
  29. NIKETHAMIDE [Concomitant]
     Active Substance: NIKETHAMIDE
     Route: 042
     Dates: start: 20180112, end: 20180112
  30. MEDIUM AND LONG CHAIN FAT EMULSION INJECTION [Concomitant]
     Active Substance: LIPOSYN (R) INTRAVENOUS FAT EMULSION
     Route: 042
     Dates: start: 20181223, end: 20190112
  31. ATEZOLIZUMAB. [Suspect]
     Active Substance: ATEZOLIZUMAB
     Indication: NON-SMALL CELL LUNG CANCER
     Dosage: ON 06/DEC/2018 AT 10:00, SHE RECEIVED THE MOST RECENT DOSE OF ATEZOLIZUMAB PRIOR TO THE ADVERSE EVEN
     Route: 042
     Dates: start: 20181114
  32. FUROSEMIDE. [Concomitant]
     Active Substance: FUROSEMIDE
     Route: 042
     Dates: start: 20181224, end: 20181224
  33. MECOBALAMIN [Concomitant]
     Active Substance: METHYLCOBALAMIN
     Route: 048
     Dates: start: 20181031, end: 20181105
  34. GLUCOSE/SODIUM CHLORIDE [Concomitant]
     Active Substance: DEXTROSE\SODIUM CHLORIDE
     Route: 042
     Dates: start: 20181223, end: 20181225
  35. LANSOPRAZOLE. [Concomitant]
     Active Substance: LANSOPRAZOLE
     Route: 042
     Dates: start: 20181221, end: 20181221
  36. OXALIPLATIN. [Concomitant]
     Active Substance: OXALIPLATIN
     Route: 045
     Dates: start: 20181229, end: 20190112
  37. ACETYLCYSTEINE. [Concomitant]
     Active Substance: ACETYLCYSTEINE
     Route: 050
     Dates: start: 20181023, end: 20181025
  38. SODIUM CHLORIDE. [Concomitant]
     Active Substance: SODIUM CHLORIDE
     Route: 042
     Dates: start: 20181223, end: 20190112
  39. PIPERACILLIN/TAZOBACTAM SODIUM [Concomitant]
     Active Substance: PIPERACILLIN SODIUM\TAZOBACTAM SODIUM
     Route: 042
     Dates: start: 20190103, end: 20190105

REACTIONS (1)
  - Asthenia [Not Recovered/Not Resolved]

NARRATIVE: CASE EVENT DATE: 20181121
